FAERS Safety Report 8459617-X (Version None)
Quarter: 2012Q2

REPORT INFORMATION
  Report Type: 
  Country: None (occurrence: None)
  Receive Date: 20120622
  Receipt Date: 20120615
  Transmission Date: 20120825
  Serious: Yes (Death, Hospitalization)
  Sender: FDA-Public Use
  Company Number: US-GLAXOSMITHKLINE-A0981398A

PATIENT
  Age: 54 Year
  Sex: Male

DRUGS (2)
  1. UNSPECIFIED MEDICATIONS [Concomitant]
  2. LOVAZA [Suspect]
     Indication: PRODUCT USED FOR UNKNOWN INDICATION
     Dosage: 4CAP PER DAY
     Route: 048

REACTIONS (2)
  - ABDOMINAL PAIN UPPER [None]
  - PANCREATITIS ACUTE [None]
